FAERS Safety Report 19301903 (Version 1)
Quarter: 2021Q2

REPORT INFORMATION
  Report Type: Spontaneous
  Country: US (occurrence: US)
  Receive Date: 20210525
  Receipt Date: 20210525
  Transmission Date: 20210717
  Serious: Yes (Other)
  Sender: FDA-Public Use
  Company Number: None

PATIENT
  Age: 75 Year
  Sex: Male
  Weight: 84 kg

DRUGS (2)
  1. ERAVACYCLINE. [Suspect]
     Active Substance: ERAVACYCLINE
     Indication: MYCOBACTERIUM CHELONAE INFECTION
     Route: 042
     Dates: start: 20200508, end: 20210509
  2. ERAVACYCLINE. [Suspect]
     Active Substance: ERAVACYCLINE
     Indication: PNEUMONIA
     Route: 042
     Dates: start: 20200508, end: 20210509

REACTIONS (5)
  - Sensory disturbance [None]
  - Hypoaesthesia oral [None]
  - Paraesthesia oral [None]
  - Hypoaesthesia [None]
  - Paraesthesia [None]

NARRATIVE: CASE EVENT DATE: 20200508
